FAERS Safety Report 18623700 (Version 2)
Quarter: 2021Q1

REPORT INFORMATION
  Report Type: Report from Study
  Country: CL (occurrence: CL)
  Receive Date: 20201216
  Receipt Date: 20210102
  Transmission Date: 20210419
  Serious: Yes (Hospitalization)
  Sender: FDA-Public Use
  Company Number: NVSC2020CL331184

PATIENT
  Age: 2 Year
  Sex: Female
  Weight: 8 kg

DRUGS (2)
  1. OMNITROPE [Suspect]
     Active Substance: SOMATROPIN
     Indication: NEPHROPATHY
     Dosage: 1.2 IU, QD (10 MG/1.5 ML/1.2 IU.)
     Route: 058
     Dates: start: 20200224
  2. OMNITROPE [Suspect]
     Active Substance: SOMATROPIN
     Dosage: 4 MG, UNKNOWN
     Route: 065

REACTIONS (5)
  - Granuloma [Unknown]
  - Product dose omission issue [Unknown]
  - Product use in unapproved indication [Unknown]
  - Mucosal discolouration [Unknown]
  - Incorrect dose administered [Unknown]

NARRATIVE: CASE EVENT DATE: 20201207
